FAERS Safety Report 9393059 (Version 1)
Quarter: 2013Q3

REPORT INFORMATION
  Report Type: Spontaneous
  Country: US (occurrence: US)
  Receive Date: 20130710
  Receipt Date: 20130710
  Transmission Date: 20140515
  Serious: No
  Sender: FDA-Public Use
  Company Number: US-BAYER-2013-080561

PATIENT
  Age: 69 Year
  Sex: Male

DRUGS (2)
  1. STAXYN (FDT/ODT) [Suspect]
     Indication: ERECTILE DYSFUNCTION
     Dosage: 10 MG, 2
     Route: 048
     Dates: start: 20130626, end: 20130626
  2. LISINOPRIL [Concomitant]

REACTIONS (4)
  - Product physical issue [None]
  - Drug ineffective [Recovered/Resolved]
  - Incorrect dose administered [Recovered/Resolved]
  - Spontaneous penile erection [Recovered/Resolved]
